FAERS Safety Report 8244877-0 (Version None)
Quarter: 2012Q1

REPORT INFORMATION
  Report Type: 
  Country: None (occurrence: None)
  Receive Date: 20120329
  Receipt Date: 20110728
  Transmission Date: 20120608
  Serious: No
  Sender: FDA-Public Use
  Company Number: US-MYLANLABS-2011S1015662

PATIENT
  Age: 39 Year
  Sex: Female

DRUGS (4)
  1. FENTANYL-100 [Suspect]
     Indication: BACK PAIN
     Dosage: Q48H
     Route: 062
  2. PERCOCET [Concomitant]
  3. CYMBALTA [Concomitant]
  4. XANAX [Concomitant]

REACTIONS (2)
  - TREMOR [None]
  - WITHDRAWAL SYNDROME [None]
